FAERS Safety Report 10055888 (Version 2)
Quarter: 2014Q2

REPORT INFORMATION
  Report Type: Report from Study
  Country: US (occurrence: US)
  Receive Date: 20140403
  Receipt Date: 20140403
  Transmission Date: 20141212
  Serious: Yes (Hospitalization)
  Sender: FDA-Public Use
  Company Number: US-JNJFOC-20140203150

PATIENT
  Age: 31 Year
  Sex: Male

DRUGS (3)
  1. INVEGA SUSTENNA [Suspect]
     Indication: SCHIZOAFFECTIVE DISORDER
     Route: 030
     Dates: start: 20120127
  2. OLANZAPINE [Concomitant]
     Route: 048
     Dates: start: 20140127
  3. PROAIR HFA [Concomitant]
     Route: 055
     Dates: start: 20140127

REACTIONS (2)
  - Investigation [Not Recovered/Not Resolved]
  - Drug dose omission [Unknown]
